FAERS Safety Report 7553754-X (Version None)
Quarter: 2011Q2

REPORT INFORMATION
  Report Type: 
  Country: None (occurrence: None)
  Receive Date: 20110617
  Receipt Date: 20110609
  Transmission Date: 20111010
  Serious: Yes (Hospitalization)
  Sender: FDA-Public Use
  Company Number: US-ASTELLAS-2011US002872

PATIENT
  Age: 54 Year
  Sex: Male

DRUGS (8)
  1. INSULIN GLARGINE [Concomitant]
     Indication: PRODUCT USED FOR UNKNOWN INDICATION
     Dosage: UNK
     Route: 065
  2. METOPROLOL TARTRATE [Concomitant]
     Indication: PRODUCT USED FOR UNKNOWN INDICATION
     Dosage: UNK
     Route: 065
  3. VALGANCICLOVIR [Concomitant]
     Indication: PRODUCT USED FOR UNKNOWN INDICATION
     Dosage: UNK
     Route: 065
  4. MYCOPHENOLATE MEFETIL [Suspect]
     Indication: LIVER TRANSPLANT
     Dosage: 1 G, Q12 HOURS
     Route: 048
  5. PROGRAF [Suspect]
     Indication: LIVER TRANSPLANT
     Dosage: 1.5 MG, Q12 HOURS
     Route: 048
  6. TRIMETHOPRIM + SULFAMETHOXAZOLE [Concomitant]
     Indication: PRODUCT USED FOR UNKNOWN INDICATION
     Dosage: UNK
     Route: 065
  7. PREDNISONE [Suspect]
     Indication: LIVER TRANSPLANT
     Dosage: 10 MG, UID/QD
     Route: 048
  8. INSULIN LISPRO [Concomitant]
     Indication: PRODUCT USED FOR UNKNOWN INDICATION
     Dosage: UNK
     Route: 065

REACTIONS (5)
  - CANDIDIASIS [None]
  - SEPSIS [None]
  - BACTERAEMIA [None]
  - HEPATIC ARTERY THROMBOSIS [None]
  - BILOMA [None]
